FAERS Safety Report 5975540-4 (Version None)
Quarter: 2008Q4

REPORT INFORMATION
  Report Type: 
  Country: None (occurrence: None)
  Receive Date: 20081202
  Receipt Date: 20080509
  Transmission Date: 20090506
  Serious: No
  Sender: FDA-Public Use
  Company Number: A0728139A

PATIENT
  Sex: Male

DRUGS (1)
  1. AMOXICILLIN + CLAVULANATE POTASSIUM [Suspect]
     Indication: DRUG USE FOR UNKNOWN INDICATION
     Route: 048
     Dates: start: 20080424

REACTIONS (3)
  - DRUG ADMINISTRATION ERROR [None]
  - DYSGEUSIA [None]
  - PRODUCT QUALITY ISSUE [None]
